FAERS Safety Report 20770460 (Version 2)
Quarter: 2022Q2

REPORT INFORMATION
  Report Type: Spontaneous
  Country: JP (occurrence: JP)
  Receive Date: 20220429
  Receipt Date: 20220605
  Transmission Date: 20220721
  Serious: Yes (Hospitalization)
  Sender: FDA-Public Use
  Company Number: JP-Eisai-202201124_DVG_P_1

PATIENT
  Age: 37 Year
  Sex: Female

DRUGS (4)
  1. DAYVIGO [Suspect]
     Active Substance: LEMBOREXANT
     Indication: Insomnia
     Route: 048
     Dates: start: 20220421, end: 20220421
  2. DAYVIGO [Suspect]
     Active Substance: LEMBOREXANT
     Indication: Overdose
  3. LUNESTA [Suspect]
     Active Substance: ESZOPICLONE
     Indication: Insomnia
     Route: 048
     Dates: start: 20220421, end: 20220421
  4. LUNESTA [Suspect]
     Active Substance: ESZOPICLONE
     Indication: Overdose

REACTIONS (1)
  - Intentional overdose [Recovered/Resolved]

NARRATIVE: CASE EVENT DATE: 20220421
